FAERS Safety Report 7285562-1 (Version None)
Quarter: 2011Q1

REPORT INFORMATION
  Report Type: 
  Country: None (occurrence: None)
  Receive Date: 20110125
  Receipt Date: 20110110
  Transmission Date: 20110831
  Serious: Yes (Death)
  Sender: FDA-Public Use
  Company Number: 025541

PATIENT
  Age: 34 Year
  Sex: Male

DRUGS (3)
  1. OPIOIDS [Suspect]
  2. ACETAMINOPHEN [Suspect]
  3. ALPRAZOLAM [Suspect]

REACTIONS (2)
  - INCORRECT ROUTE OF DRUG ADMINISTRATION [None]
  - DRUG ABUSE [None]
